FAERS Safety Report 21387180 (Version 2)
Quarter: 2023Q1

REPORT INFORMATION
  Report Type: Spontaneous
  Country: US (occurrence: US)
  Receive Date: 20220928
  Receipt Date: 20230120
  Transmission Date: 20230418
  Serious: Yes (Other)
  Sender: FDA-Public Use
  Company Number: US-PFM-2022-06955

PATIENT
  Sex: Male
  Weight: 9.88 kg

DRUGS (2)
  1. HEMANGEOL [Suspect]
     Active Substance: PROPRANOLOL HYDROCHLORIDE
     Indication: Haemangioma
     Dosage: 2 ML, BID (2/DAY)
     Route: 048
  2. HEMANGEOL [Suspect]
     Active Substance: PROPRANOLOL HYDROCHLORIDE
     Dosage: 2.3 ML, BID (2/DAY)
     Route: 048

REACTIONS (1)
  - COVID-19 [Unknown]
